FAERS Safety Report 9904602 (Version 2)
Quarter: 2014Q1

REPORT INFORMATION
  Report Type: Spontaneous
  Country: TR (occurrence: TR)
  Receive Date: 20140218
  Receipt Date: 20140218
  Transmission Date: 20141002
  Serious: Yes (Other)
  Sender: FDA-Public Use
  Company Number: TR-ELI_LILLY_AND_COMPANY-TR201402000341

PATIENT
  Sex: Male

DRUGS (11)
  1. CYMBALTA [Suspect]
     Indication: PANIC ATTACK
     Dosage: 60 MG, QD
     Route: 065
     Dates: start: 2013
  2. XANAX [Suspect]
     Indication: PANIC ATTACK
     Dosage: 0.5 MG, QD
     Route: 065
     Dates: start: 2013, end: 201401
  3. CONCOR [Concomitant]
     Indication: HYPERTENSION
     Dosage: 5 MG, UNKNOWN
     Route: 065
  4. CONCOR [Concomitant]
     Indication: ARRHYTHMIA
  5. RYTMONORM [Concomitant]
     Indication: HYPERTENSION
     Dosage: 150 MG, UNKNOWN
     Route: 065
  6. RYTMONORM [Concomitant]
     Indication: ARRHYTHMIA
  7. COUMADIN                           /00014802/ [Concomitant]
     Indication: HYPERTENSION
     Dosage: 5 MG, UNKNOWN
     Route: 065
  8. COUMADIN                           /00014802/ [Concomitant]
     Indication: ARRHYTHMIA
  9. SPIRIVA [Concomitant]
     Indication: CHRONIC OBSTRUCTIVE PULMONARY DISEASE
     Dosage: UNK, UNKNOWN
     Route: 065
  10. SERETIDE [Concomitant]
     Indication: CHRONIC OBSTRUCTIVE PULMONARY DISEASE
     Dosage: UNK, UNKNOWN
     Route: 065
  11. PANTO                              /01263204/ [Concomitant]
     Indication: GASTRIC DISORDER
     Dosage: UNK, UNKNOWN
     Route: 065

REACTIONS (5)
  - Nephropathy [Unknown]
  - Chest pain [Unknown]
  - Nervous system disorder [Not Recovered/Not Resolved]
  - Tremor [Unknown]
  - Dermatitis allergic [Unknown]
